FAERS Safety Report 5871759-1 (Version None)
Quarter: 2008Q3

REPORT INFORMATION
  Report Type: 
  Country: None (occurrence: None)
  Receive Date: 20080905
  Receipt Date: 20080903
  Transmission Date: 20090109
  Serious: Yes (Hospitalization)
  Sender: FDA-Public Use
  Company Number: FR-BRISTOL-MYERS SQUIBB COMPANY-14324305

PATIENT
  Age: 85 Year
  Sex: Female

DRUGS (13)
  1. COAPROVEL TABS 300MG/12.5MG [Suspect]
     Dates: end: 20080423
  2. DEROXAT [Suspect]
     Dates: start: 20080418, end: 20080423
  3. VASTAREL [Concomitant]
  4. STILNOX [Concomitant]
  5. LEXOMIL [Concomitant]
  6. FOSAVANCE [Concomitant]
  7. ASPIRIN [Concomitant]
  8. TARDYFERON [Concomitant]
  9. MOTILIUM [Concomitant]
  10. FURADANTIN [Concomitant]
  11. LOVENOX [Concomitant]
  12. NITROGLYCERIN [Concomitant]
  13. DOLIPRANE [Concomitant]

REACTIONS (3)
  - HYPONATRAEMIA [None]
  - INAPPROPRIATE ANTIDIURETIC HORMONE SECRETION [None]
  - STUPOR [None]
